FAERS Safety Report 17880998 (Version 2)
Quarter: 2020Q3

REPORT INFORMATION
  Report Type: Spontaneous
  Country: DE (occurrence: DE)
  Receive Date: 20200610
  Receipt Date: 20200801
  Transmission Date: 20201103
  Serious: Yes (Death, Life-Threatening, Hospitalization, Other)
  Sender: FDA-Public Use
  Company Number: NVSC2020DE149420

PATIENT
  Sex: Female
  Weight: 72 kg

DRUGS (26)
  1. HYDROMORPHONE [Concomitant]
     Active Substance: HYDROMORPHONE
     Indication: PRODUCT USED FOR UNKNOWN INDICATION
     Dosage: 2 MG
     Route: 065
     Dates: start: 201902
  2. BISOPROLOL [Concomitant]
     Active Substance: BISOPROLOL
     Indication: PRODUCT USED FOR UNKNOWN INDICATION
     Dosage: UNK, QD (1/2 10/25)
     Route: 065
     Dates: start: 201302
  3. VALSARTAN HEXAL 320 MG FILMTABLETTEN [Suspect]
     Active Substance: VALSARTAN
     Indication: PRODUCT USED FOR UNKNOWN INDICATION
     Dosage: UNK, BID, ? A TABLET OF 320 MG
     Route: 048
     Dates: start: 20180523
  4. VALSARTAN HEXAL 160 MG FILMTABLETTEN [Suspect]
     Active Substance: VALSARTAN
     Dosage: UNK
     Route: 065
     Dates: start: 2017, end: 2018
  5. AMLODIPIN HEXAL 5 MG TABLETTEN [AMLODIPINE MESILATE] [Suspect]
     Active Substance: AMLODIPINE MESYLATE
     Indication: PRODUCT USED FOR UNKNOWN INDICATION
     Dosage: 5 MG
     Route: 048
     Dates: start: 2016, end: 2017
  6. L?THYROX HEXAL 100MCG TABLETS [Suspect]
     Active Substance: LEVOTHYROXINE SODIUM
     Indication: PRODUCT USED FOR UNKNOWN INDICATION
     Dosage: UNK, QD, 1.25 TABLETS OF 100 ?G
     Route: 048
     Dates: start: 20180524
  7. PREDNISOLONE. [Suspect]
     Active Substance: PREDNISOLONE
     Indication: PRODUCT USED FOR UNKNOWN INDICATION
     Route: 065
  8. FERRO?SANOL DUODENAL [Concomitant]
     Active Substance: FERROUS GLYCINE SULFATE
     Indication: PRODUCT USED FOR UNKNOWN INDICATION
     Dosage: 1 DF, QD
     Route: 065
  9. DIOVAN [Suspect]
     Active Substance: VALSARTAN
     Dosage: 160 MG, BID (MORNING AND EVENING)
     Route: 065
     Dates: start: 201310
  10. PANTOPRAZOLE [Concomitant]
     Active Substance: PANTOPRAZOLE
     Indication: PRODUCT USED FOR UNKNOWN INDICATION
     Dosage: 40 MG, QD
     Route: 065
  11. MOMETASONE [Concomitant]
     Active Substance: MOMETASONE
     Indication: PRODUCT USED FOR UNKNOWN INDICATION
     Dosage: 1 UNK
     Route: 065
  12. HALOPERIDOL ^NEURAX^ [Concomitant]
     Indication: PRODUCT USED FOR UNKNOWN INDICATION
     Dosage: 30 ML
     Route: 065
     Dates: start: 201902
  13. L?THYROX HEXAL125 MIKROGRAMM [Suspect]
     Active Substance: LEVOTHYROXINE SODIUM
     Indication: PRODUCT USED FOR UNKNOWN INDICATION
     Route: 065
  14. L?THYROXIN [Concomitant]
     Active Substance: LEVOTHYROXINE SODIUM
     Indication: PRODUCT USED FOR UNKNOWN INDICATION
     Dosage: 125 MG, QD
     Route: 065
     Dates: start: 199003, end: 2018
  15. ECURAL [Concomitant]
     Active Substance: MOMETASONE
     Indication: PRODUCT USED FOR UNKNOWN INDICATION
     Dosage: UNK
     Route: 065
  16. EUTHYROX [Concomitant]
     Active Substance: LEVOTHYROXINE SODIUM
     Indication: PRODUCT USED FOR UNKNOWN INDICATION
     Dosage: 125 UNK, QD
     Route: 065
  17. DIOVAN [Suspect]
     Active Substance: VALSARTAN
     Dosage: UNK UNK, QD (1/2 X 160 MG 1 X DAILY IN THE EVENING)
     Route: 065
     Dates: start: 20150215, end: 201310
  18. AMLODIPIN 1 A FARMA [Suspect]
     Active Substance: AMLODIPINE BESYLATE
     Indication: PRODUCT USED FOR UNKNOWN INDICATION
     Dosage: 5 MG
     Route: 065
     Dates: start: 2013, end: 2018
  19. BISOPROLOL PLUS 10/25 ? 1 A PHARMA [Suspect]
     Active Substance: BISOPROLOL FUMARATE\HYDROCHLOROTHIAZIDE
     Indication: PRODUCT USED FOR UNKNOWN INDICATION
     Dosage: UNK
     Route: 065
     Dates: start: 2014, end: 2018
  20. PANTOPRAZOLE [Concomitant]
     Active Substance: PANTOPRAZOLE
     Dosage: 40 MG
     Route: 065
     Dates: start: 201901
  21. DIOVAN [Suspect]
     Active Substance: VALSARTAN
     Indication: PRODUCT USED FOR UNKNOWN INDICATION
     Dosage: 80 MG, BID
     Route: 065
     Dates: start: 201001, end: 201302
  22. DIOVAN [Suspect]
     Active Substance: VALSARTAN
     Dosage: UNK UNK, QD 2X 80 (1X DAILY IN THE MORNING)
     Route: 065
     Dates: start: 20130215, end: 201310
  23. VALSARTAN 1A PHARMA 160 MG ? FILMTABLETTEN [Suspect]
     Active Substance: VALSARTAN
     Indication: PRODUCT USED FOR UNKNOWN INDICATION
     Dosage: 160 MG
     Route: 065
     Dates: start: 201312, end: 2017
  24. VALSARTAN HEXAL 160 MG FILMTABLETTEN [Suspect]
     Active Substance: VALSARTAN
     Indication: PRODUCT USED FOR UNKNOWN INDICATION
     Dosage: UNK
     Route: 065
     Dates: start: 2014
  25. AMLODIPIN HEXAL 5 MG TABLETTEN [AMLODIPINE MESILATE] [Suspect]
     Active Substance: AMLODIPINE MESYLATE
     Dosage: 5 MG, BID
     Route: 048
     Dates: start: 20180523
  26. IBUPROFEN. [Concomitant]
     Active Substance: IBUPROFEN
     Indication: PRODUCT USED FOR UNKNOWN INDICATION
     Dosage: 400 MG, BID
     Route: 065

REACTIONS (85)
  - Gait disturbance [Unknown]
  - Renal neoplasm [Recovered/Resolved]
  - Erysipelas [Recovering/Resolving]
  - Myocardial ischaemia [Unknown]
  - Atrial fibrillation [Unknown]
  - Fatigue [Unknown]
  - Inflammation [Unknown]
  - Nocturia [Unknown]
  - Melanocytic naevus [Unknown]
  - Tendon rupture [Unknown]
  - Rash [Unknown]
  - Ventricular hypertrophy [Unknown]
  - Abscess [Unknown]
  - Weight decreased [Unknown]
  - Confusional state [Unknown]
  - Arrhythmia [Unknown]
  - Ventricular tachycardia [Unknown]
  - Pruritus [Unknown]
  - Cerumen impaction [Unknown]
  - Erythema [Unknown]
  - Osteoporosis [Unknown]
  - Metastases to lung [Not Recovered/Not Resolved]
  - Cognitive disorder [Recovering/Resolving]
  - Memory impairment [Recovering/Resolving]
  - Asthenia [Unknown]
  - Renal failure [Unknown]
  - Cardiac failure [Unknown]
  - Hypothyroidism [Unknown]
  - Basal cell carcinoma [Recovered/Resolved]
  - Anaemia [Unknown]
  - Arthralgia [Recovering/Resolving]
  - Haemorrhoids [Unknown]
  - Renal cyst [Unknown]
  - Urinary incontinence [Not Recovered/Not Resolved]
  - Drug hypersensitivity [Unknown]
  - Metastasis [Unknown]
  - Aphasia [Recovering/Resolving]
  - Gastroenteritis [Unknown]
  - Varicose vein [Unknown]
  - Fall [Unknown]
  - Hypokalaemia [Unknown]
  - Pleural effusion [Recovered/Resolved]
  - Tinnitus [Unknown]
  - Meniscus injury [Unknown]
  - Joint swelling [Unknown]
  - Diarrhoea [Unknown]
  - Aortic aneurysm [Unknown]
  - Suicidal ideation [Fatal]
  - Visual impairment [Unknown]
  - Bradycardia [Unknown]
  - Colitis [Unknown]
  - Fibroma [Unknown]
  - Urinary tract infection [Unknown]
  - Iron deficiency [Unknown]
  - Productive cough [Unknown]
  - Anal incontinence [Not Recovered/Not Resolved]
  - Osteoarthritis [Unknown]
  - Dyspnoea exertional [Unknown]
  - Blood pressure abnormal [Unknown]
  - General physical health deterioration [Recovering/Resolving]
  - Drug intolerance [Unknown]
  - Ventricular extrasystoles [Unknown]
  - Seborrhoeic keratosis [Unknown]
  - Defaecation disorder [Unknown]
  - Rash pustular [Unknown]
  - Varicophlebitis [Unknown]
  - Cataract [Unknown]
  - Abdominal pain [Unknown]
  - Peripheral swelling [Recovering/Resolving]
  - Dizziness [Unknown]
  - Insomnia [Unknown]
  - Dysuria [Unknown]
  - Abdominal distension [Unknown]
  - Stomatitis [Unknown]
  - Death [Fatal]
  - Renal cell carcinoma [Not Recovered/Not Resolved]
  - Peritumoural oedema [Unknown]
  - Dyspnoea [Unknown]
  - Urinary retention [Unknown]
  - Diabetes mellitus [Unknown]
  - Vomiting [Unknown]
  - Blood glucose abnormal [Unknown]
  - Weight increased [Recovering/Resolving]
  - Adenoma benign [Unknown]
  - Colon adenoma [Unknown]

NARRATIVE: CASE EVENT DATE: 2007
